FAERS Safety Report 10186021 (Version 3)
Quarter: 2014Q2

REPORT INFORMATION
  Report Type: Spontaneous
  Country: FR (occurrence: FR)
  Receive Date: 20140521
  Receipt Date: 20140630
  Transmission Date: 20141212
  Serious: Yes (Hospitalization)
  Sender: FDA-Public Use
  Company Number: FR-ACTAVIS-2014-10278

PATIENT
  Age: 70 Year
  Sex: Male

DRUGS (16)
  1. PAROXETINE ARROW [Suspect]
     Indication: PRODUCT USED FOR UNKNOWN INDICATION
     Dosage: 1 DF, UNK
     Route: 048
  2. GABAPENTIN ARROW [Suspect]
     Indication: PRODUCT USED FOR UNKNOWN INDICATION
     Dosage: UNK
     Route: 048
     Dates: start: 20120903, end: 20120903
  3. SODIUM HEPARIN [Suspect]
     Indication: EXTRACORPOREAL CIRCULATION
     Dosage: 20000 UI + 11000 (BOLUS)
     Route: 042
     Dates: start: 20120903, end: 20120903
  4. KETAMINE PANPHARMA [Suspect]
     Indication: ANAESTHESIA
     Dosage: UNK
     Route: 042
     Dates: start: 20120903, end: 20120903
  5. ESMERON [Suspect]
     Indication: ANAESTHESIA
     Dosage: UNK
     Route: 042
     Dates: start: 20120903, end: 20120903
  6. ZINNAT                             /00454601/ [Suspect]
     Indication: ANAESTHESIA
     Dosage: UNK
     Route: 042
     Dates: start: 20120903, end: 20120903
  7. PROTAMINE CHOAY [Suspect]
     Indication: PRODUCT USED FOR UNKNOWN INDICATION
     Dosage: UNK
     Route: 042
     Dates: start: 20120903, end: 20120903
  8. EXACYL [Suspect]
     Indication: HAEMORRHAGE PROPHYLAXIS
     Dosage: UNK
     Route: 042
     Dates: start: 20120903, end: 20120903
  9. ATARAX                             /00058401/ [Suspect]
     Indication: ANXIETY
     Dosage: 50 MG AND 75 MG DAILY
     Route: 048
     Dates: start: 20120902, end: 20120903
  10. MIDAZOLAM PANPHARMA [Suspect]
     Indication: ANAESTHESIA
     Dosage: UNK
     Route: 042
     Dates: start: 20120903, end: 20120903
  11. ULTIVA [Suspect]
     Indication: ANAESTHESIA
     Dosage: UNK
     Route: 042
     Dates: start: 20120903, end: 20120903
  12. PROPOFOL LIPURO [Suspect]
     Indication: ANAESTHESIA
     Dosage: UNK
     Route: 042
     Dates: start: 20120903, end: 20120903
  13. TADENAN [Suspect]
     Indication: MICTURITION DISORDER
     Dosage: 50 MG, BID
     Route: 048
     Dates: end: 20120903
  14. TANAKAN [Suspect]
     Indication: COGNITIVE DISORDER
     Dosage: 40 MG, TID
     Route: 048
     Dates: end: 20120903
  15. LEXOMIL [Suspect]
     Indication: ANXIETY
     Dosage: 1.5 MG, UNK
     Route: 048
     Dates: end: 20120903
  16. INEXIUM                            /01479302/ [Concomitant]
     Indication: PROPHYLAXIS AGAINST GASTROINTESTINAL ULCER
     Dosage: 1 DF, DAILY
     Route: 048
     Dates: start: 20120902, end: 20120922

REACTIONS (4)
  - Cardio-respiratory arrest [Recovered/Resolved with Sequelae]
  - Incision site haemorrhage [Recovered/Resolved]
  - Pericardial haemorrhage [Recovered/Resolved]
  - Cardiac tamponade [Recovered/Resolved]
